FAERS Safety Report 12726611 (Version 1)
Quarter: 2016Q3

REPORT INFORMATION
  Report Type: Report from Study
  Country: PL (occurrence: PL)
  Receive Date: 20160908
  Receipt Date: 20160908
  Transmission Date: 20161109
  Serious: Yes (Hospitalization, Other)
  Sender: FDA-Public Use
  Company Number: PL-ASTRAZENECA-2016SE93448

PATIENT
  Age: 29723 Day
  Sex: Male

DRUGS (8)
  1. ZAFIRON [Concomitant]
  2. AMBROSOL [Concomitant]
  3. BETALOC [Concomitant]
     Active Substance: METOPROLOL TARTRATE
     Dates: end: 201605
  4. ASA [Suspect]
     Active Substance: ASPIRIN
     Indication: THROMBOSIS PROPHYLAXIS
     Route: 048
     Dates: end: 20141226
  5. AZD6140 [Suspect]
     Active Substance: TICAGRELOR
     Indication: CORONARY ARTERY DISEASE
     Route: 048
     Dates: start: 20141125
  6. AZD6140 [Suspect]
     Active Substance: TICAGRELOR
     Indication: THROMBOSIS PROPHYLAXIS
     Route: 048
     Dates: start: 20141125
  7. ASA [Suspect]
     Active Substance: ASPIRIN
     Indication: CORONARY ARTERY DISEASE
     Route: 048
     Dates: end: 20141226
  8. MIFLONIDE [Concomitant]
     Active Substance: BUDESONIDE

REACTIONS (3)
  - Dyspnoea [Recovered/Resolved]
  - Sinus bradycardia [Recovered/Resolved]
  - Asthma [Recovered/Resolved]

NARRATIVE: CASE EVENT DATE: 20160518
